FAERS Safety Report 13642588 (Version 1)
Quarter: 2017Q2

REPORT INFORMATION
  Report Type: Spontaneous
  Country: US (occurrence: US)
  Receive Date: 20170612
  Receipt Date: 20170612
  Transmission Date: 20170830
  Serious: No
  Sender: FDA-Public Use
  Company Number: US-SEPTODONT-201603627

PATIENT

DRUGS (1)
  1. SEPTOCAINE AND EPINEPHRINE [Suspect]
     Active Substance: ARTICAINE HYDROCHLORIDE\EPINEPHRINE BITARTRATE
     Indication: LOCAL ANAESTHESIA
     Dosage: 2 SOMETIMES 3 CARPULES ADMINISTERED IN HEALTHY TISSUE VIA MANDIBULAR BLOCK WITH 27G NEEDLE
     Route: 004

REACTIONS (2)
  - Injection site pain [Recovered/Resolved]
  - Drug ineffective [Recovered/Resolved]
